FAERS Safety Report 9603837 (Version 4)
Quarter: 2014Q4

REPORT INFORMATION
  Report Type: Spontaneous
  Country: US (occurrence: US)
  Receive Date: 20131008
  Receipt Date: 20141128
  Transmission Date: 20150529
  Serious: Yes (Hospitalization, Other)
  Sender: FDA-Public Use
  Company Number: US-JNJFOC-20130915318

PATIENT
  Age: 54 Year
  Sex: Female
  Weight: 88 kg

DRUGS (3)
  1. BENADRYL ALLERGY [Suspect]
     Active Substance: DIPHENHYDRAMINE HYDROCHLORIDE
     Indication: INSOMNIA
     Route: 048
     Dates: start: 20130816, end: 20130910
  2. BENADRYL ALLERGY [Suspect]
     Active Substance: DIPHENHYDRAMINE HYDROCHLORIDE
     Indication: INSOMNIA
     Route: 048
     Dates: start: 20130816, end: 20130910
  3. ATIVAN [Suspect]
     Active Substance: LORAZEPAM
     Indication: SLEEP DISORDER THERAPY
     Dosage: INTERVAL 3 1/2 WEEKS
     Route: 065
     Dates: start: 20130816

REACTIONS (16)
  - Oesophageal irritation [Recovering/Resolving]
  - Dyspnoea [Recovered/Resolved]
  - Product use issue [Unknown]
  - Chest discomfort [Recovered/Resolved]
  - Paraesthesia oral [Recovered/Resolved]
  - Chest pain [Unknown]
  - Acne [Recovered/Resolved]
  - Cough [Recovering/Resolving]
  - Swelling face [Recovered/Resolved]
  - Skin irritation [Recovering/Resolving]
  - Tongue discolouration [Recovering/Resolving]
  - Lip swelling [Recovered/Resolved]
  - Hypersensitivity [Recovering/Resolving]
  - Dyspepsia [Recovered/Resolved]
  - Burning sensation [Recovering/Resolving]
  - Drug ineffective [Unknown]

NARRATIVE: CASE EVENT DATE: 20130907
